FAERS Safety Report 6469492-0 (Version None)
Quarter: 2009Q4

REPORT INFORMATION
  Report Type: 
  Country: None (occurrence: None)
  Receive Date: 20091203
  Receipt Date: 20091130
  Transmission Date: 20100525
  Serious: Yes (Hospitalization)
  Sender: FDA-Public Use
  Company Number: US-BRISTOL-MYERS SQUIBB COMPANY-12854709

PATIENT
  Age: 49 Year
  Sex: Male
  Weight: 57 kg

DRUGS (14)
  1. ABILIFY [Suspect]
     Indication: NERVOUSNESS
     Dosage: DOSE INCREASED TO 20 MG
     Route: 048
  2. ABILIFY [Suspect]
     Indication: ANXIETY
     Dosage: DOSE INCREASED TO 20 MG
     Route: 048
  3. ABILIFY [Suspect]
     Indication: SCHIZOPHRENIA, PARANOID TYPE
     Dosage: DOSE INCREASED TO 20 MG
     Route: 048
  4. ABILIFY [Suspect]
     Indication: ABNORMAL BEHAVIOUR
     Dosage: DOSE INCREASED TO 20 MG
     Route: 048
  5. VASOTEC [Concomitant]
  6. ZOCOR [Concomitant]
  7. KLONOPIN [Concomitant]
  8. GLUCOPHAGE [Concomitant]
  9. GLUCOTROL [Concomitant]
  10. PROPRANOLOL [Concomitant]
  11. DEPAKOTE [Concomitant]
  12. BACTRIM [Concomitant]
  13. LISINOPRIL [Concomitant]
  14. VISTARIL [Concomitant]

REACTIONS (6)
  - CIRCULATORY COLLAPSE [None]
  - LYMPHADENOPATHY [None]
  - TARDIVE DYSKINESIA [None]
  - TREMOR [None]
  - URINARY TRACT INFECTION [None]
  - WEIGHT DECREASED [None]
